FAERS Safety Report 5940993-4 (Version None)
Quarter: 2008Q4

REPORT INFORMATION
  Report Type: 
  Country: None (occurrence: None)
  Receive Date: 20081104
  Receipt Date: 20081031
  Transmission Date: 20090506
  Serious: Yes (Death, Other)
  Sender: FDA-Public Use
  Company Number: PHHY2008JP25863

PATIENT
  Age: 35 Year
  Sex: Female

DRUGS (4)
  1. LOPRESSOR [Suspect]
     Dosage: 200 MG
     Route: 048
  2. CIPRALAN [Suspect]
     Indication: ATRIAL FIBRILLATION
     Dosage: 300 MG/DAY
     Route: 048
  3. CIPRALAN [Suspect]
     Dosage: 4900 MG
  4. CLONAZEPAM [Suspect]
     Dosage: 6 MG
     Route: 048

REACTIONS (9)
  - BRADYCARDIA [None]
  - CARDIAC FAILURE [None]
  - CARDIAC PACEMAKER INSERTION [None]
  - CARDIO-RESPIRATORY ARREST [None]
  - CONTINUOUS HAEMODIAFILTRATION [None]
  - INTENTIONAL OVERDOSE [None]
  - ISCHAEMIA [None]
  - PERCUTANEOUS CORONARY INTERVENTION [None]
  - SUICIDE ATTEMPT [None]
